FAERS Safety Report 13018078 (Version 2)
Quarter: 2017Q2

REPORT INFORMATION
  Report Type: Spontaneous
  Country: HU (occurrence: HU)
  Receive Date: 20161212
  Receipt Date: 20170411
  Transmission Date: 20170830
  Serious: Yes (Disabling, Other)
  Sender: FDA-Public Use
  Company Number: HU-JNJFOC-20161208861

PATIENT
  Sex: Male

DRUGS (1)
  1. XEPLION [Suspect]
     Active Substance: PALIPERIDONE PALMITATE
     Indication: PRODUCT USED FOR UNKNOWN INDICATION
     Route: 030

REACTIONS (5)
  - Sexual dysfunction [Not Recovered/Not Resolved]
  - Mastitis [Not Recovered/Not Resolved]
  - Renal disorder [Unknown]
  - Testicular atrophy [Unknown]
  - Rash [Unknown]
